FAERS Safety Report 14181304 (Version 1)
Quarter: 2017Q4

REPORT INFORMATION
  Report Type: Spontaneous
  Country: FR (occurrence: FR)
  Receive Date: 20171112
  Receipt Date: 20171112
  Transmission Date: 20180321
  Serious: Yes (Hospitalization)
  Sender: FDA-Public Use
  Company Number: FR-TEVA-824280ROM

PATIENT
  Age: 16 Year
  Sex: Female

DRUGS (2)
  1. DOLIPRANE [Suspect]
     Active Substance: ACETAMINOPHEN
     Indication: SUICIDAL IDEATION
     Dosage: 7 GRAM DAILY;
     Route: 048
     Dates: start: 20171013, end: 20171013
  2. ANTADYS [Suspect]
     Active Substance: FLURBIPROFEN
     Indication: SUICIDAL IDEATION
     Dosage: 6 DOSAGE FORMS DAILY;
     Route: 048
     Dates: start: 20171013, end: 20171013

REACTIONS (2)
  - Intentional overdose [Recovered/Resolved]
  - Drug level increased [Recovered/Resolved]

NARRATIVE: CASE EVENT DATE: 20171013
